FAERS Safety Report 13696640 (Version 1)
Quarter: 2017Q2

REPORT INFORMATION
  Report Type: Spontaneous
  Country: JP (occurrence: JP)
  Receive Date: 20170628
  Receipt Date: 20170628
  Transmission Date: 20170830
  Serious: Yes (Hospitalization)
  Sender: FDA-Public Use
  Company Number: PHJP2017JP020856

PATIENT
  Sex: Female

DRUGS (3)
  1. VOLTAREN [Suspect]
     Active Substance: DICLOFENAC SODIUM
     Indication: HEADACHE
     Dosage: 25 MG, UNK
     Route: 048
  2. ETIZOLAM [Suspect]
     Active Substance: ETIZOLAM
     Indication: PSYCHOTIC DISORDER
     Dosage: UNK
     Route: 065
  3. LOXONIN [Concomitant]
     Active Substance: LOXOPROFEN SODIUM
     Indication: HEADACHE
     Dosage: UNK
     Route: 065

REACTIONS (8)
  - Feeding disorder [Unknown]
  - Tremor [Unknown]
  - Asthenia [Unknown]
  - Pyrexia [Recovered/Resolved]
  - Product use in unapproved indication [Unknown]
  - Hypoaesthesia [Unknown]
  - Psychotic disorder [Unknown]
  - Dyskinesia [Unknown]
